FAERS Safety Report 13874034 (Version 1)
Quarter: 2017Q3

REPORT INFORMATION
  Report Type: Spontaneous
  Country: US (occurrence: US)
  Receive Date: 20170816
  Receipt Date: 20170816
  Transmission Date: 20171127
  Serious: Yes (Life-Threatening, Hospitalization, Other)
  Sender: FDA-Public Use
  Company Number: US-ELI_LILLY_AND_COMPANY-US201708004989

PATIENT
  Age: 70 Year
  Sex: Male

DRUGS (8)
  1. FLAXSEED OIL                       /01649403/ [Concomitant]
     Dosage: UNK, UNKNOWN
     Route: 065
  2. ANDROGEL [Suspect]
     Active Substance: TESTOSTERONE
     Indication: BLOOD TESTOSTERONE DECREASED
     Dosage: 60.75 MG, UNKNOWN
     Route: 061
     Dates: start: 2013, end: 201707
  3. LISINOPRIL. [Concomitant]
     Active Substance: LISINOPRIL
     Dosage: UNK, UNKNOWN
     Route: 065
  4. TOCOPHEROL [Concomitant]
     Active Substance: TOCOPHEROL
     Dosage: UNK, UNKNOWN
     Route: 065
  5. AXIRON [Suspect]
     Active Substance: TESTOSTERONE
     Indication: PRODUCT USED FOR UNKNOWN INDICATION
     Dosage: UNK, UNKNOWN
     Route: 065
     Dates: start: 201707, end: 201707
  6. IRON COMPLEX                       /00023501/ [Concomitant]
     Dosage: UNK, UNKNOWN
     Route: 065
  7. LEVOTHYROXINE. [Concomitant]
     Active Substance: LEVOTHYROXINE
     Dosage: UNK, UNKNOWN
     Route: 065
  8. ATORVASTATIN [Concomitant]
     Active Substance: ATORVASTATIN
     Dosage: UNK, UNKNOWN
     Route: 065

REACTIONS (4)
  - Nocardiosis [Recovering/Resolving]
  - Cardiac arrest [Recovered/Resolved]
  - Pneumonia legionella [Recovering/Resolving]
  - Pulmonary embolism [Recovered/Resolved]

NARRATIVE: CASE EVENT DATE: 201707
